FAERS Safety Report 20308632 (Version 1)
Quarter: 2022Q1

REPORT INFORMATION
  Report Type: Spontaneous
  Country: US (occurrence: None)
  Receive Date: 20220106
  Receipt Date: 20220106
  Transmission Date: 20220424
  Serious: Yes (Other)
  Sender: FDA-Public Use
  Company Number: None

PATIENT
  Age: 74 Year
  Sex: Female

DRUGS (4)
  1. RETEVMO [Suspect]
     Active Substance: SELPERCATINIB
     Indication: Lung neoplasm malignant
     Dosage: TAKE 2 CAPSULES (160 MG) BY MOUTH TWICE DAILY. DO NOT TAKE FIRST DOSE UNTIL DIRECT BY CLINICAL TEAM
     Route: 048
     Dates: start: 20211215
  2. RETEVMO [Suspect]
     Active Substance: SELPERCATINIB
     Dosage: FREQUENCY : AS DIRECTED;?
     Route: 048
  3. OXYCODONE [Concomitant]
     Active Substance: OXYCODONE
  4. TYLENOL [Concomitant]
     Active Substance: ACETAMINOPHEN

REACTIONS (3)
  - Medical device implantation [None]
  - Bone operation [None]
  - Bone cancer [None]

NARRATIVE: CASE EVENT DATE: 20211227
